FAERS Safety Report 17656476 (Version 2)
Quarter: 2020Q2

REPORT INFORMATION
  Report Type: Spontaneous
  Country: US (occurrence: US)
  Receive Date: 20200410
  Receipt Date: 20200521
  Transmission Date: 20200713
  Serious: Yes (Hospitalization)
  Sender: FDA-Public Use
  Company Number: US-VERTEX PHARMACEUTICALS-2020-008353

PATIENT
  Age: 25 Year
  Sex: Female
  Weight: 70 kg

DRUGS (10)
  1. TRIKAFTA [Suspect]
     Active Substance: ELEXACAFTOR\IVACAFTOR\TEZACAFTOR
     Indication: CYSTIC FIBROSIS
     Dosage: 2 ORANGE TABS (100MG ELEXA/50MG TEZA/75MG IVA) IN AM;1 BLUE TAB (150MG IVA) IN PM
     Route: 048
     Dates: start: 20200320
  2. AZTREONAM. [Concomitant]
     Active Substance: AZTREONAM
  3. BREO ELLIPTA [Concomitant]
     Active Substance: FLUTICASONE FUROATE\VILANTEROL TRIFENATATE
  4. AZITHROMYCIN ANHYDROUS. [Concomitant]
     Active Substance: AZITHROMYCIN ANHYDROUS
  5. CREON [Concomitant]
     Active Substance: PANCRELIPASE AMYLASE\PANCRELIPASE LIPASE\PANCRELIPASE PROTEASE
  6. DORNASE ALFA. [Concomitant]
     Active Substance: DORNASE ALFA
  7. PREVACID [Concomitant]
     Active Substance: LANSOPRAZOLE
  8. URSODIOL. [Concomitant]
     Active Substance: URSODIOL
  9. TOBRAMYCIN. [Concomitant]
     Active Substance: TOBRAMYCIN
  10. HYPERTONIC SALINE SOLUTION [Concomitant]
     Active Substance: SODIUM CHLORIDE

REACTIONS (1)
  - Abdominal pain [Recovered/Resolved]

NARRATIVE: CASE EVENT DATE: 20200330
